FAERS Safety Report 24179074 (Version 1)
Quarter: 2024Q3

REPORT INFORMATION
  Report Type: Spontaneous
  Country: US (occurrence: None)
  Receive Date: 20240805
  Receipt Date: 20240805
  Transmission Date: 20241017
  Serious: Yes (Other)
  Sender: Public
  Company Number: None

PATIENT
  Age: 56 Year
  Sex: Female

DRUGS (11)
  1. CAPECITABINE [Suspect]
     Active Substance: CAPECITABINE
     Indication: Breast cancer
     Dosage: FREQUENCY : DAILY;?
     Route: 048
     Dates: start: 20240311
  2. ESCITALOPRAM OXALATE [Concomitant]
     Active Substance: ESCITALOPRAM OXALATE
  3. PROCHLORPERAZINE 10MG TABLETS [Concomitant]
  4. ONDANSETRON 4MG TABLETS [Concomitant]
  5. ASPIRIN 81 MG EC LOW DOSE DiF TABS [Concomitant]
  6. CYANOCOBALAMIN 1000MCG/ML INJ, 1 ML [Concomitant]
  7. DOCUSATE SOD 100MG CAPSULES [Concomitant]
  8. FENTANYL 75MCG/HR PATCH [Concomitant]
  9. GABAPENTIN 300MG CAPSULES [Concomitant]
  10. HYDROXYCHLOROQUINE [Concomitant]
     Active Substance: HYDROXYCHLOROQUINE
  11. OMEPRAZOLE [Concomitant]
     Active Substance: OMEPRAZOLE

REACTIONS (3)
  - Neurotoxicity [None]
  - Cerebrovascular accident [None]
  - COVID-19 [None]
